FAERS Safety Report 21590289 (Version 1)
Quarter: 2022Q4

REPORT INFORMATION
  Report Type: Spontaneous
  Country: US (occurrence: US)
  Receive Date: 20221114
  Receipt Date: 20221114
  Transmission Date: 20230113
  Serious: Yes (Other)
  Sender: FDA-Public Use
  Company Number: US-BIOVITRUM-2022US13049

PATIENT
  Sex: Female
  Weight: 9 kg

DRUGS (6)
  1. SYNAGIS [Suspect]
     Active Substance: PALIVIZUMAB
     Indication: Fallot^s tetralogy
  2. ALBUTEROL SULFATE [Concomitant]
     Active Substance: ALBUTEROL SULFATE
  3. ASPIRIN 81 MG TAB CHEW [Concomitant]
  4. SYNTHROID 75 MCG TABLET [Concomitant]
  5. SYNAGIS [Suspect]
     Active Substance: PALIVIZUMAB
     Indication: Lung assist device therapy
  6. PROPRANOLOL HCL POWDER [Concomitant]

REACTIONS (1)
  - Thrombosis [Unknown]
